FAERS Safety Report 16608374 (Version 2)
Quarter: 2019Q3

REPORT INFORMATION
  Report Type: Spontaneous
  Country: AR (occurrence: AR)
  Receive Date: 20190722
  Receipt Date: 20190802
  Transmission Date: 20191004
  Serious: Yes (Hospitalization, Other)
  Sender: FDA-Public Use
  Company Number: AR-PFIZER INC-2019308645

PATIENT
  Age: 63 Year
  Sex: Male

DRUGS (2)
  1. SUTENT [Suspect]
     Active Substance: SUNITINIB MALATE
     Indication: METASTATIC RENAL CELL CARCINOMA
     Dosage: 50 MG, CYCLIC (SCHEME 4/2 REST)
     Dates: start: 20190218, end: 2019
  2. SUTENT [Suspect]
     Active Substance: SUNITINIB MALATE
     Dosage: UNK, TWO WEEKS ON AND ONE WEEK OFF
     Dates: start: 2019

REACTIONS (9)
  - Mucosal disorder [Unknown]
  - Skin disorder [Unknown]
  - Skin exfoliation [Unknown]
  - Thrombocytopenia [Unknown]
  - Pruritus [Unknown]
  - Skin irritation [Unknown]
  - Gastroenteritis [Unknown]
  - Sensitive skin [Unknown]
  - Anal haemorrhage [Unknown]

NARRATIVE: CASE EVENT DATE: 2019
